FAERS Safety Report 7766082-4 (Version None)
Quarter: 2011Q3

REPORT INFORMATION
  Report Type: 
  Country: None (occurrence: None)
  Receive Date: 20110921
  Receipt Date: 20110909
  Transmission Date: 20111222
  Serious: Yes (Other)
  Sender: FDA-Public Use
  Company Number: PHEH2009US07546

PATIENT
  Sex: Female

DRUGS (11)
  1. ARIMIDEX [Concomitant]
     Indication: BREAST CANCER
  2. PERCOCET [Concomitant]
  3. TYLENOL-500 [Concomitant]
  4. ZOMETA [Suspect]
     Indication: BREAST CANCER
     Dosage: 4 MG, QMO
     Dates: end: 20080101
  5. VITAMIN D [Concomitant]
  6. LEVOTHYROXINE SODIUM [Concomitant]
  7. ALEVE [Concomitant]
  8. EFFEXOR [Concomitant]
  9. ATENOLOL [Concomitant]
  10. ZOMETA [Suspect]
     Indication: METASTASES TO BONE
  11. KEFLEX [Concomitant]

REACTIONS (38)
  - RHINORRHOEA [None]
  - OSTEOARTHRITIS [None]
  - OSTEOMYELITIS [None]
  - OSTEONECROSIS OF JAW [None]
  - PAIN [None]
  - UPPER RESPIRATORY TRACT INFECTION [None]
  - HOT FLUSH [None]
  - EAR PAIN [None]
  - OROPHARYNGEAL PAIN [None]
  - ARTHRALGIA [None]
  - DEPRESSION [None]
  - CELLULITIS [None]
  - BONE CYST [None]
  - PERIODONTAL DISEASE [None]
  - DISABILITY [None]
  - SWELLING [None]
  - HEPATIC STEATOSIS [None]
  - NEOPLASM PROGRESSION [None]
  - NEOPLASM MALIGNANT [None]
  - OSTEOPOROSIS [None]
  - HYPERLIPIDAEMIA [None]
  - ANXIETY [None]
  - LYMPHADENOPATHY [None]
  - SWELLING FACE [None]
  - EXPOSED BONE IN JAW [None]
  - PAIN IN JAW [None]
  - ABDOMINAL DISCOMFORT [None]
  - PRODUCTIVE COUGH [None]
  - WHEEZING [None]
  - BONE PAIN [None]
  - SPINAL OSTEOARTHRITIS [None]
  - LOOSE TOOTH [None]
  - TOOTHACHE [None]
  - HYPOAESTHESIA [None]
  - INJURY [None]
  - ANHEDONIA [None]
  - FATIGUE [None]
  - DIVERTICULUM [None]
